FAERS Safety Report 7996119-9 (Version None)
Quarter: 2011Q4

REPORT INFORMATION
  Report Type: 
  Country: None (occurrence: None)
  Receive Date: 20111220
  Receipt Date: 20111213
  Transmission Date: 20120403
  Serious: Yes (Other)
  Sender: FDA-Public Use
  Company Number: PHEH2011US011727

PATIENT
  Sex: Female

DRUGS (4)
  1. SYNTHROID [Concomitant]
     Dosage: 112 MG, QD
  2. RECLAST [Suspect]
     Dosage: 5 MG, UNK
     Route: 042
     Dates: start: 20111116
  3. OMEPRAZOLE [Concomitant]
     Indication: GASTROOESOPHAGEAL REFLUX DISEASE
     Dosage: 40 MG, QD
  4. LORAZEPAM [Concomitant]
     Dosage: 5 MG, UNK

REACTIONS (2)
  - DIARRHOEA [None]
  - URINARY TRACT INFECTION [None]
